FAERS Safety Report 9068444 (Version 2)
Quarter: 2013Q2

REPORT INFORMATION
  Report Type: Spontaneous
  Country: GB (occurrence: GB)
  Receive Date: 20130128
  Receipt Date: 20130521
  Transmission Date: 20140414
  Serious: Yes (Other)
  Sender: FDA-Public Use
  Company Number: PHHY2013GB005780

PATIENT
  Sex: Male

DRUGS (4)
  1. BISOPROLOL [Suspect]
     Indication: HEART RATE IRREGULAR
     Dosage: 2.5 MG, QD
  2. BENDROFLUMETHIAZIDE [Interacting]
     Dosage: 1.25 MG, (ONLY TAKES 1.25 MG, BUT 2.5 MG RECOMMENDED)
  3. LOSARTAN [Interacting]
     Indication: AORTIC ANEURYSM
     Dosage: 100 MG, QD
  4. ACETYLSALICYLIC ACID [Interacting]

REACTIONS (8)
  - Cardiac failure [Unknown]
  - Chest pain [Unknown]
  - Dyspnoea [Unknown]
  - Blood pressure diastolic increased [Unknown]
  - Transient ischaemic attack [Unknown]
  - Aneurysm [Unknown]
  - Abdominal distension [Unknown]
  - Drug interaction [Unknown]
